FAERS Safety Report 12405667 (Version 7)
Quarter: 2017Q1

REPORT INFORMATION
  Report Type: Spontaneous
  Country: US (occurrence: US)
  Receive Date: 20160526
  Receipt Date: 20170224
  Transmission Date: 20170428
  Serious: Yes (Other)
  Sender: FDA-Public Use
  Company Number: US-GLAXOSMITHKLINE-US2016GSK062683

PATIENT
  Age: 63 Year
  Sex: Female
  Weight: 93.42 kg

DRUGS (1)
  1. NUCALA [Suspect]
     Active Substance: MEPOLIZUMAB
     Indication: ASTHMA
     Dosage: 100 MG, Z (ONCE MONTHLY)
     Route: 042
     Dates: start: 20160422

REACTIONS (13)
  - Pain [Recovering/Resolving]
  - Injection site pain [Recovering/Resolving]
  - Cough [Recovering/Resolving]
  - Skin hypertrophy [Unknown]
  - Fatigue [Unknown]
  - Diabetes mellitus [Unknown]
  - Injection related reaction [Recovering/Resolving]
  - Productive cough [Recovering/Resolving]
  - Urticaria [Unknown]
  - Aphonia [Unknown]
  - Malaise [Unknown]
  - Dry skin [Unknown]
  - Gastrointestinal disorder [Unknown]

NARRATIVE: CASE EVENT DATE: 201606
